FAERS Safety Report 22087933 (Version 1)
Quarter: 2023Q1

REPORT INFORMATION
  Report Type: Spontaneous
  Country: US (occurrence: US)
  Receive Date: 20230313
  Receipt Date: 20230313
  Transmission Date: 20230418
  Serious: No
  Sender: FDA-Public Use
  Company Number: US-009507513-2302USA006436

PATIENT
  Sex: Female

DRUGS (2)
  1. JANUVIA [Suspect]
     Active Substance: SITAGLIPTIN PHOSPHATE
     Indication: Type 2 diabetes mellitus
     Dosage: 100 MG ONCE DAILY
     Route: 048
     Dates: start: 202109
  2. REVLIMID [Concomitant]
     Active Substance: LENALIDOMIDE

REACTIONS (2)
  - Diarrhoea [Recovering/Resolving]
  - Inability to afford medication [Unknown]
